FAERS Safety Report 25468185 (Version 1)
Quarter: 2025Q2

REPORT INFORMATION
  Report Type: Spontaneous
  Country: US (occurrence: US)
  Receive Date: 20250623
  Receipt Date: 20250623
  Transmission Date: 20250716
  Serious: No
  Sender: MERCK SHARP & DOHME LLC
  Company Number: US-009507513-2298556

PATIENT
  Age: 48 Year
  Sex: Female

DRUGS (7)
  1. SOTATERCEPT [Suspect]
     Active Substance: SOTATERCEPT
     Indication: Pulmonary arterial hypertension
     Dates: start: 202405
  2. SOTATERCEPT [Suspect]
     Active Substance: SOTATERCEPT
  3. SOTATERCEPT [Suspect]
     Active Substance: SOTATERCEPT
  4. SOTATERCEPT [Suspect]
     Active Substance: SOTATERCEPT
  5. SYNTHROID [Concomitant]
     Active Substance: LEVOTHYROXINE SODIUM
  6. MACITENTAN [Concomitant]
     Active Substance: MACITENTAN
  7. TADALAFIL [Concomitant]
     Active Substance: TADALAFIL

REACTIONS (6)
  - Pulmonary arterial pressure decreased [Unknown]
  - Cardiac output decreased [Unknown]
  - Cardiac index decreased [Unknown]
  - Vascular resistance pulmonary decreased [Unknown]
  - Blood pressure decreased [Unknown]
  - Pulmonary arterial wedge pressure decreased [Unknown]

NARRATIVE: CASE EVENT DATE: 20250101
